FAERS Safety Report 10050216 (Version 3)
Quarter: 2014Q2

REPORT INFORMATION
  Report Type: Report from Study
  Country: JP (occurrence: JP)
  Receive Date: 20140401
  Receipt Date: 20140422
  Transmission Date: 20141212
  Serious: Yes (Hospitalization)
  Sender: FDA-Public Use
  Company Number: JP-SA-2014SA036509

PATIENT
  Age: 61 Year
  Sex: Male
  Weight: 69.1 kg

DRUGS (22)
  1. TAXOTERE [Suspect]
     Indication: NON-SMALL CELL LUNG CANCER
     Route: 065
     Dates: start: 20131126
  2. TAXOTERE [Suspect]
     Indication: NON-SMALL CELL LUNG CANCER
     Route: 065
     Dates: start: 20130730
  3. TAXOTERE [Suspect]
     Indication: NON-SMALL CELL LUNG CANCER
     Route: 065
     Dates: start: 20130924
  4. TAXOTERE [Suspect]
     Indication: NON-SMALL CELL LUNG CANCER
     Route: 065
     Dates: start: 20140218
  5. BLINDED THERAPY [Suspect]
     Indication: NON-SMALL CELL LUNG CANCER
     Route: 065
     Dates: start: 20130730
  6. BLINDED THERAPY [Suspect]
     Indication: NON-SMALL CELL LUNG CANCER
     Route: 065
     Dates: start: 20130924
  7. BLINDED THERAPY [Suspect]
     Indication: NON-SMALL CELL LUNG CANCER
     Route: 065
     Dates: start: 20131126
  8. BLINDED THERAPY [Suspect]
     Indication: NON-SMALL CELL LUNG CANCER
     Route: 065
     Dates: start: 20140218
  9. TAKEPRON [Concomitant]
     Dates: start: 20130718
  10. MAGMITT [Concomitant]
     Dates: start: 20130709
  11. MAGMITT [Concomitant]
  12. LAXOBERON [Concomitant]
     Dosage: FORM: LIQUID
     Dates: start: 20130723
  13. THYRADIN S [Concomitant]
     Dates: start: 20140226
  14. CODEINE PHOSPHATE [Concomitant]
     Dosage: FORM: POWDER
     Dates: start: 20140207
  15. FERROMIA [Concomitant]
     Indication: ANAEMIA
     Dates: start: 20130716
  16. FENTANYL CITRATE [Concomitant]
     Indication: PAIN
     Dates: start: 20140226
  17. VITAMEDIN CAPSULE [Concomitant]
     Dates: start: 20130803
  18. IDOMETHINE [Concomitant]
     Dosage: PATCH
     Dates: start: 20130714
  19. TARIVID [Concomitant]
     Dates: start: 20140220
  20. NIFLAN [Concomitant]
     Dates: start: 20131105
  21. LOXONIN [Concomitant]
     Dates: start: 20130802
  22. HACHIAZULE [Concomitant]
     Dates: start: 20131015

REACTIONS (2)
  - Pneumothorax [Recovered/Resolved]
  - Decreased appetite [Recovered/Resolved]
